FAERS Safety Report 4394166-X (Version None)
Quarter: 2004Q3

REPORT INFORMATION
  Report Type: 
  Country: None (occurrence: None)
  Receive Date: 20040712
  Receipt Date: 20040705
  Transmission Date: 20050211
  Serious: Yes (Disabling)
  Sender: FDA-Public Use
  Company Number: BW-BRISTOL-MYERS SQUIBB COMPANY-12631644

PATIENT
  Age: 52 Year
  Sex: Male

DRUGS (3)
  1. DIDANOSINE [Suspect]
     Indication: HIV INFECTION
     Dates: start: 20040428
  2. EFAVIRENZ [Suspect]
     Indication: HIV INFECTION
     Dates: start: 20040428
  3. ZIDOVUDINE [Suspect]
     Indication: HIV INFECTION
     Dates: start: 20040428

REACTIONS (4)
  - CONFUSIONAL STATE [None]
  - DIZZINESS [None]
  - HALLUCINATION [None]
  - NIGHTMARE [None]
